FAERS Safety Report 9684898 (Version 1)
Quarter: 2013Q4

REPORT INFORMATION
  Report Type: Spontaneous
  Country: US (occurrence: US)
  Receive Date: 20131113
  Receipt Date: 20131113
  Transmission Date: 20140711
  Serious: No
  Sender: FDA-Public Use
  Company Number: US-009507513-1310USA007681

PATIENT
  Age: 32 Year
  Sex: Female
  Weight: 78.46 kg

DRUGS (3)
  1. NEXPLANON [Suspect]
     Indication: CONTRACEPTION
     Dosage: 68MG, UNKNOWN FREQUENCY
     Route: 059
     Dates: start: 20131014, end: 20131014
  2. BUPROPION HYDROCHLORIDE [Concomitant]
  3. NIFEDICAL [Concomitant]

REACTIONS (2)
  - Device difficult to use [Recovered/Resolved]
  - Product quality issue [Unknown]
